FAERS Safety Report 6810985-1 (Version None)
Quarter: 2010Q2

REPORT INFORMATION
  Report Type: 
  Country: None (occurrence: None)
  Receive Date: 20100630
  Receipt Date: 20090310
  Transmission Date: 20101027
  Serious: No
  Sender: FDA-Public Use
  Company Number: US-PFIZER INC-2009165391

PATIENT
  Sex: Female
  Weight: 53.07 kg

DRUGS (2)
  1. NICOTROL [Suspect]
     Indication: SMOKING CESSATION THERAPY
     Dosage: UNK
     Dates: start: 20090127
  2. DRUG, UNSPECIFIED [Concomitant]
     Dosage: UNK

REACTIONS (1)
  - ORAL DISCOMFORT [None]
